FAERS Safety Report 8704908 (Version 4)
Quarter: 2012Q4

REPORT INFORMATION
  Report Type: 
  Country: US (occurrence: US)
  Receive Date: 20120803
  Receipt Date: 20120927
  Transmission Date: 20130627
  Serious: Yes (Hospitalization)
  Sender: FDA-Public Use
  Company Number: US-PFIZER INC-2012179039

PATIENT
  Age: 69 Year
  Sex: Male
  Weight: 74.2 kg

DRUGS (11)
  1. GEMCITABINE HYDROCHLORIDE [Suspect]
     Indication: NON-HODGKIN^S LYMPHOMA
     Dosage: 960 mg (regimen unknown)
     Route: 042
     Dates: start: 20120718, end: 20120718
  2. CISPLATIN [Suspect]
     Indication: NON-HODGKIN^S LYMPHOMA
     Dosage: 96 mg (regimen unknown)
     Route: 042
     Dates: start: 20120718, end: 20120718
  3. INOTUZUMAB OZOGAMICIN [Suspect]
     Indication: NON-HODGKIN^S LYMPHOMA
     Dosage: 1.536 mg (regimen unknown)
     Route: 042
     Dates: start: 20120719, end: 20120719
  4. RITUXIMAB [Suspect]
     Indication: NON-HODGKIN^S LYMPHOMA
     Dosage: 720 mg (regimen unknown)
     Route: 042
     Dates: start: 20120718, end: 20120718
  5. DEXAMETHASONE ACETATE [Suspect]
     Indication: NON-HODGKIN^S LYMPHOMA
     Dosage: 40 mg, 1x/day (x 4 days)
     Route: 048
     Dates: start: 20120718, end: 20120718
  6. PRADAXA [Concomitant]
     Dosage: UNK
  7. TOPROL XL [Concomitant]
     Dosage: UNK
  8. OXYCONTIN [Concomitant]
     Dosage: UNK
  9. ROXICODONE [Concomitant]
     Dosage: UNK
  10. ALLOPURINOL [Concomitant]
     Dosage: UNK
     Dates: end: 20120722
  11. CRESTOR [Concomitant]
     Dosage: UNK

REACTIONS (7)
  - Dehydration [Recovered/Resolved with Sequelae]
  - Vomiting [Recovered/Resolved with Sequelae]
  - Chills [Recovered/Resolved with Sequelae]
  - Anxiety [Recovered/Resolved with Sequelae]
  - Insomnia [Recovered/Resolved with Sequelae]
  - Acute prerenal failure [None]
  - Febrile neutropenia [None]
